FAERS Safety Report 23709357 (Version 1)
Quarter: 2024Q2

REPORT INFORMATION
  Report Type: Spontaneous
  Country: US (occurrence: US)
  Receive Date: 20240404
  Receipt Date: 20240404
  Transmission Date: 20240715
  Serious: Yes (Hospitalization, Other)
  Sender: FDA-Public Use
  Company Number: US-GLAXOSMITHKLINE-US2024GSK041831

PATIENT

DRUGS (1)
  1. BUPROPION [Suspect]
     Active Substance: BUPROPION
     Indication: Product used for unknown indication
     Dosage: UNK

REACTIONS (6)
  - Cardiogenic shock [Unknown]
  - Toxicity to various agents [Unknown]
  - Bradycardia [Unknown]
  - Hypotension [Unknown]
  - Hypokinesia [Unknown]
  - Intentional overdose [Unknown]
